FAERS Safety Report 4464837-5 (Version None)
Quarter: 2004Q4

REPORT INFORMATION
  Report Type: 
  Country: None (occurrence: None)
  Receive Date: 20041004
  Receipt Date: 20031020
  Transmission Date: 20050328
  Serious: No
  Sender: FDA-Public Use
  Company Number: 352035

PATIENT
  Age: 55 Year
  Sex: Female

DRUGS (3)
  1. COREG [Suspect]
     Indication: HYPERTENSION
     Dosage: 6.256MG PER DAY
     Route: 048
     Dates: start: 20030904
  2. HYDROCHLOROTHIAZIDE [Concomitant]
  3. MECLIZINE [Concomitant]

REACTIONS (1)
  - BLOOD TRIGLYCERIDES INCREASED [None]
